FAERS Safety Report 9929185 (Version 2)
Quarter: 2015Q4

REPORT INFORMATION
  Report Type: Report from Study
  Country: US (occurrence: US)
  Receive Date: 20140227
  Receipt Date: 20151126
  Transmission Date: 20160305
  Serious: Yes (Other)
  Sender: FDA-Public Use
  Company Number: US-ROCHE-1318546

PATIENT
  Age: 65 Year
  Sex: Female
  Weight: 49.76 kg

DRUGS (34)
  1. KYTRIL [Suspect]
     Active Substance: GRANISETRON HYDROCHLORIDE
     Indication: MALIGNANT NEOPLASM OF CHOROID
     Route: 042
     Dates: start: 20110617
  2. DIPHENHYDRAMINE HCL [Concomitant]
     Active Substance: DIPHENHYDRAMINE HYDROCHLORIDE
     Route: 042
  3. METOPROLOL SUCCINATE. [Concomitant]
     Active Substance: METOPROLOL SUCCINATE
     Route: 048
  4. TRAZODONE HYDROCHLORIDE. [Concomitant]
     Active Substance: TRAZODONE HYDROCHLORIDE
     Route: 048
  5. ACYCLOVIR. [Concomitant]
     Active Substance: ACYCLOVIR
     Route: 048
  6. DEXAMETHASONE SODIUM PHOSPHATE. [Concomitant]
     Active Substance: DEXAMETHASONE SODIUM PHOSPHATE
     Route: 042
  7. EFFEXOR XR [Concomitant]
     Active Substance: VENLAFAXINE HYDROCHLORIDE
     Route: 048
  8. MILK THISTLE [Concomitant]
     Active Substance: MILK THISTLE
     Dosage: 2 CAPSULES
     Route: 048
  9. AVASTIN [Suspect]
     Active Substance: BEVACIZUMAB
     Indication: HEPATIC CANCER
     Route: 042
     Dates: start: 20101004
  10. AVASTIN [Suspect]
     Active Substance: BEVACIZUMAB
     Dosage: 28/DEC/2011, 11/JAN/2012, 24/JAN/2012, 07/FEB/2012, 21/FEB/2012, 07/MAR/2012, 20/MAR/2012, 04/APR/20
     Route: 042
  11. TAXOL [Concomitant]
     Active Substance: PACLITAXEL
     Route: 042
     Dates: start: 20100926
  12. EFFEXOR XR [Concomitant]
     Active Substance: VENLAFAXINE HYDROCHLORIDE
     Route: 048
  13. AVASTIN [Suspect]
     Active Substance: BEVACIZUMAB
     Route: 042
  14. KYTRIL [Suspect]
     Active Substance: GRANISETRON HYDROCHLORIDE
     Indication: HEPATIC CANCER
  15. EXCEDRIN (UNITED STATES) [Concomitant]
  16. ACYCLOVIR. [Concomitant]
     Active Substance: ACYCLOVIR
     Route: 061
     Dates: end: 20120221
  17. ZOFRAN [Concomitant]
     Active Substance: ONDANSETRON HYDROCHLORIDE
     Indication: NAUSEA
     Dosage: PRN
     Route: 048
  18. ZOFRAN [Concomitant]
     Active Substance: ONDANSETRON HYDROCHLORIDE
     Indication: VOMITING
  19. PRED FORTE [Concomitant]
     Active Substance: PREDNISOLONE ACETATE
     Dosage: 1 DROP OU Q4H
     Route: 047
  20. BABY ASPIRIN [Concomitant]
     Active Substance: ASPIRIN
     Route: 065
  21. VENLAFAXINE HCL [Concomitant]
     Active Substance: VENLAFAXINE HYDROCHLORIDE
     Route: 048
  22. BONIVA [Concomitant]
     Active Substance: IBANDRONATE SODIUM
     Route: 048
  23. BABY ASPIRIN [Concomitant]
     Active Substance: ASPIRIN
     Dosage: PATIENT INCREASED WITHOUT HCP INSTRUCTION
     Route: 065
     Dates: start: 20111228, end: 20120221
  24. AVASTIN [Suspect]
     Active Substance: BEVACIZUMAB
     Indication: MALIGNANT NEOPLASM OF CHOROID
     Route: 042
     Dates: start: 20100926
  25. AVASTIN [Suspect]
     Active Substance: BEVACIZUMAB
     Dosage: 03/MAY/2011, 17/MAY/2011, 16/JUN/2011, 28/JUN/2011, 26/JUL/2011, 30/AUG/2011, 13/SEP/2011, 04/OCT/20
     Route: 042
     Dates: start: 20110412
  26. RANITIDINE HCL [Concomitant]
     Active Substance: RANITIDINE HYDROCHLORIDE
     Route: 042
  27. PALONOSETRON HYDROCHLORIDE. [Concomitant]
     Active Substance: PALONOSETRON HYDROCHLORIDE
     Route: 026
     Dates: end: 20110614
  28. BMX MOUTH SOLUTION (BENADRYL, MAALOX, LIDOCAINE) [Concomitant]
     Dosage: EVERY 3-4 HOURS PRN
     Route: 048
  29. EFFEXOR XR [Concomitant]
     Active Substance: VENLAFAXINE HYDROCHLORIDE
     Route: 048
  30. CARBOPLATIN. [Concomitant]
     Active Substance: CARBOPLATIN
  31. HEPARIN [Concomitant]
     Active Substance: HEPARIN SODIUM
     Dosage: 10 UNITS
     Route: 065
  32. IMITREX [Concomitant]
     Active Substance: SUMATRIPTAN\SUMATRIPTAN SUCCINATE
     Dosage: AS DIRECTED
     Route: 048
  33. FIORICET [Concomitant]
     Active Substance: ACETAMINOPHEN\BUTALBITAL\CAFFEINE
     Indication: PAIN
     Dosage: PRN DOSE 50-325-40 MG
     Route: 048
  34. CLARITIN [Concomitant]
     Active Substance: LORATADINE
     Route: 048

REACTIONS (21)
  - Blood pressure increased [Unknown]
  - Anaemia [Unknown]
  - Lacrimation increased [Unknown]
  - Product use issue [Unknown]
  - Thrombocytopenia [Unknown]
  - Proteinuria [Unknown]
  - Epistaxis [Unknown]
  - Eye pain [Unknown]
  - Headache [Unknown]
  - Neutropenia [Unknown]
  - Balance disorder [Unknown]
  - Eye movement disorder [Unknown]
  - Neuropathy peripheral [Unknown]
  - Sinus congestion [Unknown]
  - Pupillary deformity [Unknown]
  - Eye irritation [Unknown]
  - Fatigue [Unknown]
  - Gastrointestinal toxicity [Unknown]
  - Cytopenia [Unknown]
  - Toxicity to various agents [Unknown]
  - Mydriasis [Unknown]

NARRATIVE: CASE EVENT DATE: 201107
